FAERS Safety Report 9580183 (Version 1)
Quarter: 2013Q4

REPORT INFORMATION
  Report Type: Spontaneous
  Country: US (occurrence: None)
  Receive Date: 20131001
  Receipt Date: 20131001
  Transmission Date: 20140711
  Serious: No
  Sender: FDA-Public Use
  Company Number: None

PATIENT
  Age: 77 Year
  Sex: Female
  Weight: 76.2 kg

DRUGS (1)
  1. B 12 [Suspect]
     Dates: start: 201307, end: 201308

REACTIONS (2)
  - Product size issue [None]
  - Product formulation issue [None]
